FAERS Safety Report 5098596-2 (Version None)
Quarter: 2006Q3

REPORT INFORMATION
  Report Type: 
  Country: None (occurrence: None)
  Receive Date: 20060906
  Receipt Date: 20060310
  Transmission Date: 20061208
  Serious: No
  Sender: FDA-Public Use
  Company Number: US-GLAXOSMITHKLINE-A0597136A

PATIENT
  Age: 47 Year
  Sex: Male

DRUGS (4)
  1. REQUIP [Suspect]
     Indication: RESTLESS LEGS SYNDROME
     Dosage: 1MG PER DAY
     Route: 048
     Dates: start: 20051221
  2. LIPITOR [Concomitant]
  3. PROTONIX [Concomitant]
  4. ASPIRIN [Concomitant]

REACTIONS (1)
  - AMNESIA [None]
